FAERS Safety Report 11984207 (Version 1)
Quarter: 2016Q1

REPORT INFORMATION
  Report Type: Spontaneous
  Country: US (occurrence: US)
  Receive Date: 20160201
  Receipt Date: 20160201
  Transmission Date: 20160526
  Serious: Yes (Other)
  Sender: FDA-Public Use
  Company Number: US-SA-2016SA013665

PATIENT
  Age: 64 Year
  Sex: Female

DRUGS (3)
  1. APIDRA [Suspect]
     Active Substance: INSULIN GLULISINE
     Indication: TYPE 2 DIABETES MELLITUS
     Route: 065
  2. LANTUS [Concomitant]
     Active Substance: INSULIN GLARGINE
  3. GLIMEPIRIDE. [Concomitant]
     Active Substance: GLIMEPIRIDE

REACTIONS (13)
  - Weight increased [Unknown]
  - Joint swelling [Unknown]
  - Arthralgia [Unknown]
  - Crying [Unknown]
  - Blood glucose increased [Unknown]
  - Disability [Unknown]
  - Speech disorder [Unknown]
  - Headache [Unknown]
  - Renal disorder [Unknown]
  - Peripheral swelling [Unknown]
  - Defaecation urgency [Unknown]
  - Abdominal distension [Unknown]
  - Dry mouth [Unknown]
